FAERS Safety Report 6241973-4 (Version None)
Quarter: 2009Q2

REPORT INFORMATION
  Report Type: 
  Country: None (occurrence: None)
  Receive Date: 20090622
  Receipt Date: 20090608
  Transmission Date: 20091009
  Serious: Yes (Death)
  Sender: FDA-Public Use
  Company Number: 2009S1010133

PATIENT
  Age: 62 Year
  Sex: Female

DRUGS (2)
  1. METFORMIN TABLETS [Suspect]
     Indication: TYPE 2 DIABETES MELLITUS
  2. TROGLITAZONE [Suspect]
     Indication: TYPE 2 DIABETES MELLITUS
     Dosage: 600 MG; DAILY

REACTIONS (8)
  - ACIDOSIS [None]
  - CARDIAC ARREST [None]
  - HEPATIC FAILURE [None]
  - LIVER INJURY [None]
  - PNEUMONIA [None]
  - PULMONARY OEDEMA [None]
  - RENAL FAILURE ACUTE [None]
  - RESPIRATORY FAILURE [None]
